FAERS Safety Report 8808404 (Version 2)
Quarter: 2012Q4

REPORT INFORMATION
  Report Type: 
  Country: US (occurrence: US)
  Receive Date: 20120926
  Receipt Date: 20121016
  Transmission Date: 20130627
  Serious: No
  Sender: FDA-Public Use
  Company Number: US-PFIZER INC-2012234633

PATIENT
  Age: 70 Year
  Sex: Male

DRUGS (15)
  1. INLYTA [Suspect]
     Indication: RENAL CELL CARCINOMA
     Dosage: 5 mg, 2x/day, (BID) (Q 12 Hours)
     Route: 048
     Dates: start: 20120627
  2. PRAVASTATIN [Concomitant]
     Dosage: 40 mg/HS
  3. VERAPAMIL ER [Concomitant]
     Dosage: 180 mg, 1x/day
  4. TERAZOSIN [Concomitant]
     Dosage: 5 mg/HS
  5. CINNAMON [Concomitant]
     Dosage: UNK
  6. SAM-E [Concomitant]
     Dosage: UNK
  7. OMEGA 3-6-9 [Concomitant]
     Dosage: UNK
  8. FERROUS SULFATE [Concomitant]
     Dosage: UNK
  9. BOSWELLIA [Concomitant]
     Dosage: UNK
  10. SAW PALMETTO [Concomitant]
     Dosage: UNK
  11. GLUCOSAMINE CHONDROITIN [Concomitant]
     Dosage: UNK
  12. MELATONIN [Concomitant]
     Dosage: UNK
  13. TYLENOL [Concomitant]
     Dosage: UNK, PRN
  14. LORTAB [Concomitant]
     Dosage: 10 mg, as needed (PRN)
  15. DICLOFENAC [Concomitant]
     Dosage: 75 mg, 2x/day (Twice daily)

REACTIONS (5)
  - Disease progression [Unknown]
  - Renal cell carcinoma [Unknown]
  - Arthralgia [Unknown]
  - Bone pain [Unknown]
  - Constipation [Unknown]
